FAERS Safety Report 25362997 (Version 1)
Quarter: 2025Q2

REPORT INFORMATION
  Report Type: Spontaneous
  Country: CL (occurrence: CL)
  Receive Date: 20250527
  Receipt Date: 20250527
  Transmission Date: 20250716
  Serious: Yes (Other)
  Sender: PFIZER
  Company Number: CL-PFIZER INC-202500106950

PATIENT
  Sex: Male

DRUGS (2)
  1. LORBRENA [Suspect]
     Active Substance: LORLATINIB
     Indication: Lung neoplasm malignant
     Dosage: 100 MG, DAILY
     Dates: start: 202411, end: 2024
  2. LORBRENA [Suspect]
     Active Substance: LORLATINIB
     Dosage: 50 MG, DAILY
     Dates: start: 202412, end: 202505

REACTIONS (1)
  - Polyneuropathy [Not Recovered/Not Resolved]

NARRATIVE: CASE EVENT DATE: 20240101
